FAERS Safety Report 11172341 (Version 2)
Quarter: 2015Q2

REPORT INFORMATION
  Report Type: Spontaneous
  Country: JP (occurrence: JP)
  Receive Date: 20150608
  Receipt Date: 20150622
  Transmission Date: 20150821
  Serious: Yes (Hospitalization)
  Sender: FDA-Public Use
  Company Number: JP-PFIZER INC-2015188632

PATIENT
  Age: 88 Year
  Sex: Female
  Weight: 59 kg

DRUGS (4)
  1. AIMIX [Concomitant]
     Active Substance: AMLODIPINE BESYLATE\IRBESARTAN
     Dosage: UNK
     Dates: start: 20130424
  2. NATRIX [Concomitant]
     Active Substance: INDAPAMIDE
     Dosage: UNK
     Dates: start: 20130424
  3. SELARA [Suspect]
     Active Substance: EPLERENONE
     Dosage: 50 MG, DAILY
     Route: 048
     Dates: start: 20140407
  4. CRESTOR [Concomitant]
     Active Substance: ROSUVASTATIN CALCIUM
     Dosage: UNK
     Dates: start: 20130424

REACTIONS (5)
  - Hyponatraemia [Recovered/Resolved]
  - Vomiting [Unknown]
  - Diarrhoea [Unknown]
  - Malaise [Unknown]
  - Gastroenteritis [Unknown]

NARRATIVE: CASE EVENT DATE: 20150601
